FAERS Safety Report 8614577-3 (Version None)
Quarter: 2012Q3

REPORT INFORMATION
  Report Type: 
  Country: None (occurrence: None)
  Receive Date: 20120823
  Receipt Date: 20120809
  Transmission Date: 20120928
  Serious: Yes (Hospitalization, Disabling, Other)
  Sender: FDA-Public Use
  Company Number: NO-009507513-1205USA05307

PATIENT

DRUGS (11)
  1. FUROSEMIDE [Concomitant]
     Dosage: DOSAGE FORM: UNSPECIFIED
     Route: 065
     Dates: start: 20110601
  2. METOPROLOL SUCCINATE [Concomitant]
     Dosage: DOSAGE FORM: UNSPECIFIED
     Route: 065
     Dates: start: 20110601
  3. LOPERAMIDE HCL [Concomitant]
  4. REMICADE [Suspect]
     Indication: ANKYLOSING SPONDYLITIS
     Dosage: UNK
     Route: 041
     Dates: start: 20080101
  5. PENTASA [Concomitant]
     Dosage: DOSAGE FORM: UNSPECIFIED
     Route: 065
     Dates: start: 20110601
  6. ACETAMINOPHEN [Concomitant]
  7. ASPIRIN [Concomitant]
     Dosage: DOSAGE FORM: UNSPECIFIED
     Route: 065
     Dates: start: 20110601
  8. PARALGIN FORTE [Concomitant]
  9. ZOCOR [Suspect]
     Indication: PRODUCT USED FOR UNKNOWN INDICATION
     Dosage: DOSAGE FORM: UNSPECIFIED
     Route: 048
     Dates: start: 20110601
  10. REMICADE [Suspect]
     Dosage: UNK
     Route: 041
     Dates: start: 20110608, end: 20110601
  11. ATACAND HCT [Concomitant]
     Dosage: DOSAGE FORM: UNSPECIFIED
     Route: 065
     Dates: start: 20110601

REACTIONS (7)
  - AORTIC VALVE INCOMPETENCE [None]
  - DILATATION VENTRICULAR [None]
  - ATRIAL FIBRILLATION [None]
  - CORONARY ARTERY STENOSIS [None]
  - INTESTINAL STENOSIS [None]
  - SUBILEUS [None]
  - CARDIAC FAILURE [None]
